FAERS Safety Report 8568934 (Version 2)
Quarter: 2013Q1

REPORT INFORMATION
  Report Type: Spontaneous
  Country: US (occurrence: US)
  Receive Date: 20120518
  Receipt Date: 20130219
  Transmission Date: 20140127
  Serious: No
  Sender: FDA-Public Use
  Company Number: GB-ASTRAZENECA-2011SE36733

PATIENT
  Age: 65 Year
  Sex: Female

DRUGS (3)
  1. NEXIUM [Suspect]
     Route: 048
  2. PRILOSEC [Suspect]
     Route: 048
  3. PRILOSEC OTC [Suspect]
     Route: 048

REACTIONS (4)
  - Barrett^s oesophagus [Unknown]
  - Gastritis [Unknown]
  - Abdominal pain upper [Unknown]
  - Drug ineffective [Unknown]
